FAERS Safety Report 10334497 (Version 1)
Quarter: 2014Q3

REPORT INFORMATION
  Report Type: Spontaneous
  Country: US (occurrence: None)
  Receive Date: 20140721
  Receipt Date: 20140721
  Transmission Date: 20150326
  Serious: No
  Sender: FDA-Public Use
  Company Number: None

PATIENT
  Age: 41 Year
  Sex: Female
  Weight: 63.5 kg

DRUGS (1)
  1. OXYCODONE [Suspect]
     Active Substance: OXYCODONE
     Indication: PAIN MANAGEMENT
     Dosage: 1PILL  THREE TIMES DAILY TAKEN BY MOUTH?THIS IS 2ND TIME ON THIS GENERIC
     Route: 048

REACTIONS (7)
  - Nausea [None]
  - Abdominal pain upper [None]
  - Drug effect decreased [None]
  - Product substitution issue [None]
  - Chills [None]
  - Vomiting [None]
  - Fatigue [None]

NARRATIVE: CASE EVENT DATE: 20140717
